FAERS Safety Report 10654662 (Version 1)
Quarter: 2014Q4

REPORT INFORMATION
  Report Type: Report from Study
  Country: GB (occurrence: GB)
  Receive Date: 20141216
  Receipt Date: 20141216
  Transmission Date: 20150529
  Serious: Yes (Hospitalization)
  Sender: FDA-Public Use
  Company Number: PHHY2014GB160279

PATIENT
  Age: 51 Year
  Sex: Male
  Weight: 69.45 kg

DRUGS (7)
  1. CISPLATIN. [Suspect]
     Active Substance: CISPLATIN
     Indication: GASTRIC CANCER
     Dosage: UNK
     Dates: start: 20121026
  2. AVASTIN [Suspect]
     Active Substance: BEVACIZUMAB
     Indication: GASTRIC CANCER
     Dosage: UNK
     Route: 042
     Dates: start: 20121026
  3. EPIRUBICIN [Suspect]
     Active Substance: EPIRUBICIN
     Dosage: 550 MG,
     Dates: start: 20130603
  4. XELODA [Suspect]
     Active Substance: CAPECITABINE
     Indication: GASTRIC CANCER
     Dosage: UNK
     Route: 048
     Dates: start: 20121026
  5. XELODA [Suspect]
     Active Substance: CAPECITABINE
     Dosage: 52500 MG, UNK
     Dates: start: 20130603
  6. AVASTIN [Suspect]
     Active Substance: BEVACIZUMAB
     Dosage: 560 MG, UNK
     Dates: start: 20130603
  7. EPIRUBICIN [Suspect]
     Active Substance: EPIRUBICIN
     Indication: GASTRIC CANCER
     Dosage: UNK
     Route: 042
     Dates: start: 20121026

REACTIONS (1)
  - Headache [Recovered/Resolved]

NARRATIVE: CASE EVENT DATE: 20130807
